FAERS Safety Report 9049746 (Version 2)
Quarter: 2013Q1

REPORT INFORMATION
  Report Type: Spontaneous
  Country: US (occurrence: US)
  Receive Date: 20130205
  Receipt Date: 20130212
  Transmission Date: 20140127
  Serious: Yes (Other)
  Sender: FDA-Public Use
  Company Number: US-GILEAD-2013-0068763

PATIENT
  Sex: Female

DRUGS (2)
  1. LETAIRIS [Suspect]
     Indication: PULMONARY ARTERIAL HYPERTENSION
     Dosage: 10 MG, QD
     Route: 048
     Dates: start: 20121017, end: 20130125
  2. ADCIRCA [Concomitant]

REACTIONS (7)
  - Respiratory disorder [Unknown]
  - Gastrointestinal disorder [Unknown]
  - Eye swelling [Unknown]
  - Swelling face [Unknown]
  - Feeling hot [Unknown]
  - Flushing [Unknown]
  - Drug ineffective [None]
